FAERS Safety Report 6275039-4 (Version None)
Quarter: 2009Q3

REPORT INFORMATION
  Report Type: 
  Country: None (occurrence: None)
  Receive Date: 20090717
  Receipt Date: 20090707
  Transmission Date: 20100115
  Serious: Yes (Death)
  Sender: FDA-Public Use
  Company Number: FABR-1000876

PATIENT
  Age: 62 Year
  Sex: Male
  Weight: 42 kg

DRUGS (6)
  1. FABRAZYME [Suspect]
     Indication: FABRY'S DISEASE
     Dosage: 40 MG, Q2W, INTRAVENOUS
     Route: 042
     Dates: start: 20090609, end: 20090622
  2. FABRAZYME [Suspect]
     Indication: FABRY'S DISEASE
     Dosage: 40 MG, Q2W, INTRAVENOUS
     Route: 042
     Dates: start: 20080609
  3. OMEPRAZOLE [Concomitant]
  4. ASPIRIN [Concomitant]
  5. PANTETHINE (PANTETHINE) [Concomitant]
  6. DIMETHICONE [Concomitant]

REACTIONS (5)
  - CARDIAC FAILURE CHRONIC [None]
  - CARDIO-RESPIRATORY ARREST [None]
  - DISEASE PROGRESSION [None]
  - LOSS OF CONSCIOUSNESS [None]
  - PLEURAL EFFUSION [None]
